FAERS Safety Report 8487348-9 (Version None)
Quarter: 2012Q2

REPORT INFORMATION
  Report Type: 
  Country: None (occurrence: None)
  Receive Date: 20120628
  Receipt Date: 20120628
  Transmission Date: 20120825
  Serious: Yes (Hospitalization)
  Sender: FDA-Public Use
  Company Number: None

PATIENT
  Sex: Female
  Weight: 58 kg

DRUGS (1)
  1. CROFAB [Suspect]
     Indication: SNAKE BITE
     Dosage: 5 VIALS OVER 1 HOUR IV BOLUS
     Route: 040
     Dates: start: 20120614, end: 20120614

REACTIONS (1)
  - ANAPHYLACTOID REACTION [None]
